FAERS Safety Report 12276484 (Version 3)
Quarter: 2016Q2

REPORT INFORMATION
  Report Type: Spontaneous
  Country: DE (occurrence: DE)
  Receive Date: 20160418
  Receipt Date: 20160427
  Transmission Date: 20160815
  Serious: Yes (Hospitalization, Other)
  Sender: FDA-Public Use
  Company Number: DE-009507513-1604DEU010013

PATIENT
  Age: 6 Year
  Sex: Male

DRUGS (1)
  1. NOXAFIL [Suspect]
     Active Substance: POSACONAZOLE
     Indication: CANDIDA INFECTION
     Dosage: 140 MG, TID
     Route: 048
     Dates: start: 201511

REACTIONS (2)
  - Vasculitis [Unknown]
  - Product use issue [Unknown]

NARRATIVE: CASE EVENT DATE: 201511
